FAERS Safety Report 7141280-1 (Version None)
Quarter: 2010Q4

REPORT INFORMATION
  Report Type: 
  Country: None (occurrence: None)
  Receive Date: 20101122
  Receipt Date: 20101104
  Transmission Date: 20110411
  Serious: Yes (Hospitalization)
  Sender: FDA-Public Use
  Company Number: 201008AGG00944

PATIENT
  Sex: Male

DRUGS (10)
  1. TIROFIBAN HYDROCHLORIDE (AGRASTAT (TIROFIBAN HYDROCHLORIDE)) [Suspect]
     Dosage: (0.05 MILLIGRAM/MILLILITERS DOSE: 20ML DURING 30 MIN, THEN 10 ML/HOUR INTRAVENOUS)
     Route: 042
     Dates: start: 20100725, end: 20100726
  2. PLAVIX [Suspect]
     Dosage: (75MG TABLET DOSE: 300MG, 75 MG FOUR TIMES A DAILY ORAL)
     Route: 048
     Dates: start: 20100725, end: 20100726
  3. ASPEGIC 325 [Suspect]
     Indication: MYOCARDIAL INFARCTION
     Dosage: (250MG INTRAVENOUS)
     Route: 042
     Dates: start: 20100725, end: 20100725
  4. ISOSORBIDE DINITRATE [Suspect]
     Indication: MYOCARDIAL INFARCTION
     Dosage: (1MG/HOUR INTRAVENOUS)
     Route: 042
     Dates: start: 20100725, end: 20100725
  5. SIMVASTATIN [Concomitant]
  6. METFORMIN [Concomitant]
  7. BETAXOLOL [Concomitant]
  8. ACETYLSALICYLATE LYSINE [Concomitant]
  9. NOVONORM [Concomitant]
  10. LOXEN [Concomitant]

REACTIONS (2)
  - NEUTROPENIA [None]
  - THROMBOCYTOPENIA [None]
